FAERS Safety Report 4363729-X (Version None)
Quarter: 2004Q2

REPORT INFORMATION
  Report Type: 
  Country: None (occurrence: None)
  Receive Date: 20040521
  Receipt Date: 20040521
  Transmission Date: 20050107
  Serious: Yes (Life-Threatening, Hospitalization)
  Sender: FDA-Public Use
  Company Number: None

PATIENT
  Age: 59 Year
  Sex: Female
  Weight: 96.6 kg

DRUGS (13)
  1. VINORELBINE TARTRATE [Suspect]
     Indication: ADENOCARCINOMA
     Dosage: 41 MG DAYS 1 AND 8 IV
     Route: 042
     Dates: start: 20040423, end: 20040507
  2. DOCETAXEL [Suspect]
     Indication: ADENOCARCINOMA
     Dosage: 154 MG DAY 1 Q 21 IV
     Route: 042
     Dates: start: 20040423, end: 20040423
  3. ADVAIR DISKUS 100/50 [Concomitant]
  4. METHADONE HCL [Concomitant]
  5. TUSSIONEX [Concomitant]
  6. TRILETAL [Concomitant]
  7. DILAUDID [Concomitant]
  8. DECADRON [Concomitant]
  9. PROTONIX [Concomitant]
  10. RESTORIL [Concomitant]
  11. TRAZODONE HCL [Concomitant]
  12. LISINOPRIL [Concomitant]
  13. COPAXIN [Concomitant]

REACTIONS (1)
  - UNEVALUABLE EVENT [None]
